FAERS Safety Report 26148736 (Version 2)
Quarter: 2025Q4

REPORT INFORMATION
  Report Type: Spontaneous
  Country: DZ (occurrence: DZ)
  Receive Date: 20251212
  Receipt Date: 20251219
  Transmission Date: 20260118
  Serious: Yes (Death, Hospitalization, Other)
  Sender: Haleon PLC
  Company Number: DZ-HALEON-2278478

PATIENT
  Age: 44 Year
  Sex: Female

DRUGS (8)
  1. ACETAMINOPHEN [Suspect]
     Active Substance: ACETAMINOPHEN
     Indication: Product used for unknown indication
     Dosage: FOR SEVEN CONSECUTIVE DAYS
  2. DICLOFENAC [Suspect]
     Active Substance: DICLOFENAC
     Indication: Product used for unknown indication
  3. METHOTREXATE [Suspect]
     Active Substance: METHOTREXATE
     Indication: Arthritis
  4. LEFLUNOMIDE [Suspect]
     Active Substance: LEFLUNOMIDE
     Indication: Rheumatoid arthritis
     Dosage: IN JANUARY 2024
  5. CELECOXIB [Suspect]
     Active Substance: CELECOXIB
     Indication: Product used for unknown indication
  6. METHYLPREDNISOLONE [Concomitant]
     Active Substance: METHYLPREDNISOLONE
     Indication: Rheumatoid arthritis
     Dosage: IN 2022
  7. RITUXIMAB [Concomitant]
     Active Substance: RITUXIMAB
     Indication: Rheumatoid arthritis
     Dosage: IN 2017
  8. PREDNISONE [Concomitant]
     Active Substance: PREDNISONE
     Indication: Arthritis
     Dosage: IN JANUARY 2024

REACTIONS (15)
  - Septic shock [Fatal]
  - Bicytopenia [Unknown]
  - Immunosuppression [Unknown]
  - Arthritis bacterial [Unknown]
  - Sepsis [Unknown]
  - Infection [Unknown]
  - Acute kidney injury [Unknown]
  - Multiple organ dysfunction syndrome [Fatal]
  - Hypoperfusion [Unknown]
  - Bone abscess [Unknown]
  - Infectious pleural effusion [Unknown]
  - Oropharyngeal candidiasis [Unknown]
  - Oral herpes [Unknown]
  - Synovitis [Unknown]
  - Arthritis [Unknown]
